FAERS Safety Report 25104273 (Version 2)
Quarter: 2025Q2

REPORT INFORMATION
  Report Type: Spontaneous
  Country: US (occurrence: US)
  Receive Date: 20250321
  Receipt Date: 20250402
  Transmission Date: 20250716
  Serious: No
  Sender: ELI LILLY AND CO
  Company Number: US-ELI_LILLY_AND_COMPANY-US202503018178

PATIENT
  Age: 93 Year
  Sex: Female

DRUGS (11)
  1. INSULIN LISPRO [Suspect]
     Active Substance: INSULIN LISPRO
     Indication: Diabetes mellitus
     Dosage: 3 U, TID
     Route: 058
  2. INSULIN LISPRO [Suspect]
     Active Substance: INSULIN LISPRO
     Indication: Diabetes mellitus
     Dosage: 3 U, TID
     Route: 058
  3. INSULIN LISPRO [Suspect]
     Active Substance: INSULIN LISPRO
     Dosage: 6 U, EACH MORNING
     Route: 058
     Dates: start: 20250307
  4. INSULIN LISPRO [Suspect]
     Active Substance: INSULIN LISPRO
     Dosage: 6 U, EACH MORNING
     Route: 058
     Dates: start: 20250307
  5. INSULIN LISPRO [Suspect]
     Active Substance: INSULIN LISPRO
     Route: 058
     Dates: start: 20250307
  6. INSULIN LISPRO [Suspect]
     Active Substance: INSULIN LISPRO
     Route: 058
     Dates: start: 20250307
  7. INSULIN LISPRO [Suspect]
     Active Substance: INSULIN LISPRO
     Dosage: 4 U, EACH EVENING
     Route: 058
     Dates: start: 20250307
  8. INSULIN LISPRO [Suspect]
     Active Substance: INSULIN LISPRO
     Dosage: 4 U, EACH EVENING
     Route: 058
     Dates: start: 20250307
  9. TRESIBA [Concomitant]
     Active Substance: INSULIN DEGLUDEC
     Indication: Product used for unknown indication
  10. REPAGLINIDE [Concomitant]
     Active Substance: REPAGLINIDE
     Indication: Diabetes mellitus
     Dosage: 1 MG, TID
     Route: 048
  11. JANUVIA [Concomitant]
     Active Substance: SITAGLIPTIN PHOSPHATE
     Indication: Diabetes mellitus
     Dosage: 50 MG, EACH MORNING
     Route: 048

REACTIONS (3)
  - Incorrect dose administered [Unknown]
  - Hypoacusis [Unknown]
  - Blood glucose increased [Not Recovered/Not Resolved]
